FAERS Safety Report 12534667 (Version 3)
Quarter: 2016Q3

REPORT INFORMATION
  Report Type: Report from Study
  Country: JP (occurrence: JP)
  Receive Date: 20160706
  Receipt Date: 20160907
  Transmission Date: 20161109
  Serious: Yes (Other)
  Sender: FDA-Public Use
  Company Number: JP-AMGEN-JPNNI2016087621

PATIENT
  Age: 34 Year
  Sex: Female
  Weight: 43 kg

DRUGS (68)
  1. PROEMEND [Suspect]
     Active Substance: FOSAPREPITANT
     Indication: BREAST CANCER
     Dosage: 150 MG, UNK
     Route: 041
     Dates: start: 20160115, end: 20160115
  2. PROEMEND [Suspect]
     Active Substance: FOSAPREPITANT
     Dosage: 150 MG, UNK
     Route: 041
     Dates: start: 20160208, end: 20160208
  3. HERCEPTIN [Suspect]
     Active Substance: TRASTUZUMAB
     Indication: BREAST CANCER
     Dosage: 336 MG, UNK
     Route: 041
     Dates: start: 20160413, end: 20160413
  4. LOPEMIN [Concomitant]
     Active Substance: LOPERAMIDE HYDROCHLORIDE
     Dosage: UNK
     Route: 048
  5. RINDERON VG [Concomitant]
     Active Substance: BETAMETHASONE VALERATE\GENTAMICIN SULFATE
     Dosage: UNK
     Route: 061
  6. STROCAIN [Concomitant]
     Active Substance: OXETHAZAINE
     Dosage: UNK
     Route: 048
  7. PROTECADIN [Concomitant]
     Active Substance: LAFUTIDINE
     Dosage: UNK
     Route: 048
  8. PRIMPERAN [Concomitant]
     Active Substance: METOCLOPRAMIDE HYDROCHLORIDE
     Dosage: UNK
     Route: 048
  9. PEGFILGRASTIM [Suspect]
     Active Substance: PEGFILGRASTIM
     Dosage: 3.6 MG, UNK
     Route: 058
     Dates: start: 20160418, end: 20160418
  10. EPIRUBICIN HYDROCHLORIDE. [Suspect]
     Active Substance: EPIRUBICIN HYDROCHLORIDE
     Dosage: 136 MG, UNK
     Route: 041
     Dates: start: 20160208, end: 20160208
  11. EPIRUBICIN HYDROCHLORIDE. [Suspect]
     Active Substance: EPIRUBICIN HYDROCHLORIDE
     Dosage: 136 MG, UNK
     Route: 041
     Dates: start: 20160322, end: 20160322
  12. ALOXI [Suspect]
     Active Substance: PALONOSETRON HYDROCHLORIDE
     Dosage: 0.75 MG, UNK
     Route: 042
     Dates: start: 20160229, end: 20160229
  13. DECADRON [Suspect]
     Active Substance: DEXAMETHASONE
     Indication: BREAST CANCER
     Dosage: 8 MG, UNK
     Route: 048
     Dates: start: 20160116, end: 20160118
  14. LEUPLIN [Concomitant]
     Active Substance: LEUPROLIDE ACETATE
     Indication: BREAST CANCER
     Dosage: UNK
     Route: 058
  15. LOXOPROFEN [Concomitant]
     Active Substance: LOXOPROFEN
     Dosage: UNK
     Route: 048
  16. TRAMCET [Concomitant]
     Active Substance: ACETAMINOPHEN\TRAMADOL
     Dosage: UNK
     Route: 048
  17. BIOFERMIN [Concomitant]
     Active Substance: BACILLUS SUBTILIS\LACTOBACILLUS ACIDOPHILUS\STREPTOCOCCUS FAECAIS
     Dosage: UNK
     Route: 048
  18. PEGFILGRASTIM [Suspect]
     Active Substance: PEGFILGRASTIM
     Dosage: 3.6 MG, UNK
     Route: 058
     Dates: start: 20160302, end: 20160302
  19. 5-FU [Suspect]
     Active Substance: FLUOROURACIL
     Dosage: 684 MG, UNK
     Route: 041
     Dates: start: 20160229, end: 20160229
  20. EPIRUBICIN HYDROCHLORIDE. [Suspect]
     Active Substance: EPIRUBICIN HYDROCHLORIDE
     Indication: BREAST CANCER
     Dosage: 138 MG, UNK
     Route: 041
     Dates: start: 20160115, end: 20160115
  21. ENDOXAN [Suspect]
     Active Substance: CYCLOPHOSPHAMIDE
     Indication: BREAST CANCER
     Dosage: 690 MG, UNK
     Route: 041
     Dates: start: 20160115, end: 20160115
  22. DEXART [Suspect]
     Active Substance: DEXAMETHASONE SODIUM PHOSPHATE
     Dosage: 9.9 MG, UNK
     Route: 065
     Dates: start: 20160208, end: 20160208
  23. LEUCON [Concomitant]
     Dosage: UNK
     Route: 048
  24. ENDOXAN [Suspect]
     Active Substance: CYCLOPHOSPHAMIDE
     Dosage: 684 MG, UNK
     Route: 041
     Dates: start: 20160229, end: 20160229
  25. PROEMEND [Suspect]
     Active Substance: FOSAPREPITANT
     Dosage: 150 MG, UNK
     Route: 041
     Dates: start: 20160229, end: 20160229
  26. EMEND [Suspect]
     Active Substance: APREPITANT
     Dosage: 80 MG, UNK
     Route: 048
     Dates: start: 20160325, end: 20160326
  27. DECADRON [Suspect]
     Active Substance: DEXAMETHASONE
     Dosage: 8 MG, UNK
     Route: 048
     Dates: start: 20160209, end: 20160211
  28. DECADRON [Suspect]
     Active Substance: DEXAMETHASONE
     Dosage: 8 MG, UNK
     Route: 048
     Dates: start: 20160323, end: 20160325
  29. DECADRON [Suspect]
     Active Substance: DEXAMETHASONE
     Dosage: 8 MG, UNK
     Route: 048
     Dates: start: 20160414, end: 20160416
  30. MAGMITT [Concomitant]
     Active Substance: MAGNESIUM OXIDE
     Dosage: UNK
     Route: 048
  31. ROPION [Concomitant]
     Active Substance: FLURBIPROFEN AXETIL
     Dosage: UNK
     Route: 042
  32. HIRUDOID [Concomitant]
     Active Substance: GLYCOSAMINOGLYCANS
     Dosage: UNK
     Route: 061
  33. REBAMIPIDE [Concomitant]
     Active Substance: REBAMIPIDE
     Dosage: UNK
     Route: 048
  34. AZ [Concomitant]
     Dosage: UNK
     Route: 049
  35. PEGFILGRASTIM [Suspect]
     Active Substance: PEGFILGRASTIM
     Dosage: 3.6 MG, UNK
     Route: 058
     Dates: start: 20160324, end: 20160324
  36. 5-FU [Suspect]
     Active Substance: FLUOROURACIL
     Indication: BREAST CANCER
     Dosage: 690 MG, UNK
     Route: 041
     Dates: start: 20160115, end: 20160115
  37. 5-FU [Suspect]
     Active Substance: FLUOROURACIL
     Dosage: 683 MG, UNK
     Route: 041
     Dates: start: 20160322, end: 20160322
  38. ENDOXAN [Suspect]
     Active Substance: CYCLOPHOSPHAMIDE
     Dosage: 683 MG, UNK
     Route: 041
     Dates: start: 20160322, end: 20160322
  39. ALOXI [Suspect]
     Active Substance: PALONOSETRON HYDROCHLORIDE
     Indication: BREAST CANCER
     Dosage: 0.75 MG, UNK
     Route: 042
     Dates: start: 20160115, end: 20160115
  40. ALOXI [Suspect]
     Active Substance: PALONOSETRON HYDROCHLORIDE
     Dosage: 0.75 MG, UNK
     Route: 042
     Dates: start: 20160322, end: 20160322
  41. PROEMEND [Suspect]
     Active Substance: FOSAPREPITANT
     Dosage: 150 MG, UNK
     Route: 041
     Dates: start: 20160322, end: 20160322
  42. DEXART [Suspect]
     Active Substance: DEXAMETHASONE SODIUM PHOSPHATE
     Dosage: 9.9 MG, UNK
     Route: 065
     Dates: start: 20160229, end: 20160229
  43. EMEND [Suspect]
     Active Substance: APREPITANT
     Dosage: 80 MG, UNK
     Route: 048
     Dates: start: 20160303, end: 20160304
  44. LOXONIN [Concomitant]
     Active Substance: LOXOPROFEN SODIUM
     Dosage: UNK
     Route: 061
  45. VOLTAREN [Concomitant]
     Active Substance: DICLOFENAC SODIUM
     Dosage: UNK
     Route: 054
  46. DEPAS [Concomitant]
     Active Substance: ETIZOLAM
     Dosage: UNK
     Route: 048
  47. NASEA [Concomitant]
     Active Substance: RAMOSETRON HYDROCHLORIDE
     Dosage: UNK
     Route: 048
  48. FILGRASTIM RECOMBINANT [Concomitant]
     Dosage: 75 MUG, UNK
     Route: 065
     Dates: start: 20160509, end: 20160509
  49. PEGFILGRASTIM [Suspect]
     Active Substance: PEGFILGRASTIM
     Indication: COLONY STIMULATING FACTOR PROPHYLAXIS
     Dosage: 3.6 MG, UNK
     Route: 058
     Dates: start: 20160117, end: 20160117
  50. PEGFILGRASTIM [Suspect]
     Active Substance: PEGFILGRASTIM
     Dosage: 3.6 MG, UNK
     Route: 058
     Dates: start: 20160210, end: 20160210
  51. 5-FU [Suspect]
     Active Substance: FLUOROURACIL
     Dosage: 684 MG, UNK
     Route: 041
     Dates: start: 20160208, end: 20160208
  52. ENDOXAN [Suspect]
     Active Substance: CYCLOPHOSPHAMIDE
     Dosage: 684 MG, UNK
     Route: 041
     Dates: start: 20160208, end: 20160208
  53. DEXART [Suspect]
     Active Substance: DEXAMETHASONE SODIUM PHOSPHATE
     Dosage: 9.9 MG, UNK
     Route: 065
     Dates: start: 20160322, end: 20160322
  54. DEXART [Suspect]
     Active Substance: DEXAMETHASONE SODIUM PHOSPHATE
     Dosage: 6.6 MG, UNK
     Route: 065
     Dates: start: 20160413, end: 20160413
  55. GRANISETRON [Suspect]
     Active Substance: GRANISETRON
     Indication: BREAST CANCER
     Dosage: 3 MG, UNK
     Route: 041
     Dates: start: 20160413, end: 20160413
  56. EMEND [Suspect]
     Active Substance: APREPITANT
     Dosage: 80 MG, UNK
     Route: 048
     Dates: start: 20160211, end: 20160212
  57. FLOMOX [Concomitant]
     Active Substance: CEFCAPENE PIVOXIL HYDROCHLORIDE HYDRATE
     Dosage: UNK
     Route: 048
  58. ALLOID G [Concomitant]
     Active Substance: SODIUM ALGINATE
     Dosage: UNK
     Route: 048
  59. ALOXI [Suspect]
     Active Substance: PALONOSETRON HYDROCHLORIDE
     Dosage: 0.75 MG, UNK
     Route: 042
     Dates: start: 20160208, end: 20160208
  60. DEXART [Suspect]
     Active Substance: DEXAMETHASONE SODIUM PHOSPHATE
     Indication: BREAST CANCER
     Dosage: 9.9 MG, UNK
     Route: 065
     Dates: start: 20160115, end: 20160115
  61. DOCETAXEL. [Suspect]
     Active Substance: DOCETAXEL
     Indication: BREAST CANCER
     Dosage: 95 MG, UNK
     Route: 041
     Dates: start: 20160413, end: 20160413
  62. PRIMPERAN [Concomitant]
     Active Substance: METOCLOPRAMIDE HYDROCHLORIDE
  63. EPIRUBICIN HYDROCHLORIDE. [Suspect]
     Active Substance: EPIRUBICIN HYDROCHLORIDE
     Dosage: 136 MG, UNK
     Route: 041
     Dates: start: 20160229, end: 20160229
  64. EMEND [Suspect]
     Active Substance: APREPITANT
     Indication: BREAST CANCER
     Dosage: 80 MG, UNK
     Route: 048
     Dates: start: 20160118, end: 20160119
  65. DECADRON [Suspect]
     Active Substance: DEXAMETHASONE
     Dosage: 8 MG, UNK
     Route: 048
     Dates: start: 20160301, end: 20160303
  66. FEXOFENADINE HYDROCHLORIDE. [Concomitant]
     Active Substance: FEXOFENADINE HYDROCHLORIDE
     Dosage: UNK
     Route: 048
  67. SENNOSIDE [Concomitant]
     Active Substance: SENNOSIDES
     Dosage: UNK
     Route: 048
  68. SONAZOID [Concomitant]
     Dosage: UNK
     Route: 042

REACTIONS (3)
  - White blood cell count decreased [Recovered/Resolved]
  - Colony stimulating factor therapy [Unknown]
  - Bacterial infection [Recovered/Resolved]

NARRATIVE: CASE EVENT DATE: 20160122
